FAERS Safety Report 8131652-0 (Version None)
Quarter: 2012Q1

REPORT INFORMATION
  Report Type: 
  Country: None (occurrence: None)
  Receive Date: 20120103
  Receipt Date: 20110828
  Transmission Date: 20120608
  Serious: No
  Sender: FDA-Public Use
  Company Number: AE-2011-001177

PATIENT
  Age: 65 Year
  Sex: Male
  Weight: 87.5442 kg

DRUGS (5)
  1. RIBAVIRIN [Concomitant]
  2. PEGINTERFERON (PEGINTERFERON ALFA-2A) [Concomitant]
  3. PRAZOSIN GITS [Concomitant]
  4. ACETAMINOPHEN [Concomitant]
  5. INCIVEK [Suspect]
     Dosage: (3 IN 1 D),ORAL
     Route: 048
     Dates: start: 20110730

REACTIONS (5)
  - FEELING HOT [None]
  - PYREXIA [None]
  - PRESYNCOPE [None]
  - MENTAL IMPAIRMENT [None]
  - FATIGUE [None]
